FAERS Safety Report 12669454 (Version 1)
Quarter: 2016Q3

REPORT INFORMATION
  Report Type: Spontaneous
  Country: US (occurrence: US)
  Receive Date: 20160820
  Receipt Date: 20160820
  Transmission Date: 20161109
  Serious: No
  Sender: FDA-Public Use
  Company Number: US-ASTRAZENECA-2016SE64983

PATIENT
  Age: 21624 Day
  Sex: Female
  Weight: 104.3 kg

DRUGS (3)
  1. BENADRYL [Concomitant]
     Active Substance: DIPHENHYDRAMINE HYDROCHLORIDE
     Dates: start: 20160611
  2. BYDUREON [Suspect]
     Active Substance: EXENATIDE
     Indication: TYPE 2 DIABETES MELLITUS
     Route: 058
     Dates: start: 20160527
  3. LANTUS [Concomitant]
     Active Substance: INSULIN GLARGINE

REACTIONS (5)
  - Adverse event [Unknown]
  - Injection site erythema [Unknown]
  - Injection site pruritus [Unknown]
  - Injection site haemorrhage [Unknown]
  - Injection site swelling [Unknown]

NARRATIVE: CASE EVENT DATE: 20160610
